FAERS Safety Report 5380167-1 (Version None)
Quarter: 2007Q3

REPORT INFORMATION
  Report Type: 
  Country: None (occurrence: None)
  Receive Date: 20070706
  Receipt Date: 20070507
  Transmission Date: 20080115
  Serious: No
  Sender: FDA-Public Use
  Company Number: A0650273A

PATIENT
  Age: 59 Year
  Sex: Female

DRUGS (8)
  1. TYKERB [Suspect]
     Indication: BREAST CANCER
     Dosage: 1250MG VARIABLE DOSE
     Route: 048
     Dates: start: 20070501
  2. XELODA [Suspect]
     Indication: BREAST CANCER
     Route: 065
  3. DILANTIN [Concomitant]
  4. PROPRANOLOL [Concomitant]
  5. ATIVAN [Concomitant]
  6. DEXAMETHASONE [Concomitant]
  7. PREVACID [Concomitant]
  8. LEVOTHYROXINE SODIUM [Concomitant]

REACTIONS (1)
  - DIARRHOEA [None]
